FAERS Safety Report 9001673 (Version 1)
Quarter: 2013Q1

REPORT INFORMATION
  Report Type: Spontaneous
  Country: US (occurrence: US)
  Receive Date: 20130107
  Receipt Date: 20130107
  Transmission Date: 20140127
  Serious: Yes (Hospitalization)
  Sender: FDA-Public Use
  Company Number: PHHY2012US121535

PATIENT
  Age: 92 Year
  Sex: Female

DRUGS (4)
  1. AMIODARONE [Suspect]
     Indication: ATRIAL FIBRILLATION
     Dosage: 200 MG, UNK
  2. VERAPAMIL [Concomitant]
  3. LISINOPRIL [Concomitant]
  4. WARFARIN [Concomitant]

REACTIONS (19)
  - Mitral valve incompetence [Recovered/Resolved]
  - Diastolic dysfunction [Recovered/Resolved]
  - Hypotension [Recovered/Resolved]
  - Acute respiratory distress syndrome [Recovered/Resolved]
  - Acute interstitial pneumonitis [Recovered/Resolved]
  - Electrocardiogram abnormal [Unknown]
  - Abdominal pain [Recovered/Resolved]
  - Fatigue [Recovered/Resolved]
  - Nausea [Recovered/Resolved]
  - Dyspnoea [Recovered/Resolved]
  - Chest discomfort [Recovered/Resolved]
  - Rales [Recovered/Resolved]
  - Venous pressure jugular increased [Recovered/Resolved]
  - Bradycardia [Recovered/Resolved]
  - Pulmonary oedema [Recovered/Resolved]
  - Lung infiltration [Recovered/Resolved]
  - Leukocytosis [Recovered/Resolved]
  - Toxicity to various agents [Recovered/Resolved]
  - Transaminases increased [Recovered/Resolved]
